FAERS Safety Report 4596798-2 (Version None)
Quarter: 2005Q1

REPORT INFORMATION
  Report Type: 
  Country: None (occurrence: None)
  Receive Date: 20050228
  Receipt Date: 20020702
  Transmission Date: 20050727
  Serious: No
  Sender: FDA-Public Use
  Company Number: 2002098780GB

PATIENT
  Age: 91 Year
  Sex: Female
  Weight: 31.8 kg

DRUGS (1)
  1. DALTEPARIN SODIUM VS PLACEBO [Suspect]
     Indication: THROMBOSIS PROPHYLAXIS
     Dosage: 5000 IU, QD, SUBCUTANEOUS
     Route: 058
     Dates: start: 20020210

REACTIONS (2)
  - DEEP VEIN THROMBOSIS [None]
  - DRUG INEFFECTIVE [None]
